FAERS Safety Report 6008072-8 (Version None)
Quarter: 2008Q4

REPORT INFORMATION
  Report Type: 
  Country: None (occurrence: None)
  Receive Date: 20081217
  Receipt Date: 20080814
  Transmission Date: 20090506
  Serious: No
  Sender: FDA-Public Use
  Company Number: US-ASTRAZENECA-2008UW16616

PATIENT
  Age: 65 Year
  Sex: Female
  Weight: 101.6 kg

DRUGS (4)
  1. CRESTOR [Suspect]
     Indication: HYPERCHOLESTEROLAEMIA
     Route: 048
     Dates: start: 20080809
  2. LEVOTHYROXINE SODIUM [Concomitant]
  3. GLUCOSAMINE [Concomitant]
  4. NAPROSYN [Concomitant]

REACTIONS (1)
  - PALPITATIONS [None]
